FAERS Safety Report 20987034 (Version 1)
Quarter: 2022Q2

REPORT INFORMATION
  Report Type: Other
  Country: None (occurrence: CN)
  Receive Date: 20220621
  Receipt Date: 20220621
  Transmission Date: 20220721
  Serious: Yes (Other)
  Sender: FDA-Public Use
  Company Number: CN-Stason Pharmaceuticals, Inc.-2130077

PATIENT
  Age: 24 Month
  Sex: Male

DRUGS (11)
  1. MERCAPTOPURINE [Suspect]
     Active Substance: MERCAPTOPURINE
     Indication: Immunosuppression
     Route: 065
     Dates: start: 201302, end: 201512
  2. DAUNORUBICIN HYDROCHLORIDE [Concomitant]
     Active Substance: DAUNORUBICIN HYDROCHLORIDE
  3. VINDESINE [Concomitant]
     Active Substance: VINDESINE
  4. ASPARAGINASE [Concomitant]
     Active Substance: ASPARAGINASE
  5. PREDNISONE [Concomitant]
     Active Substance: PREDNISONE
  6. DIGOXIN [Concomitant]
     Active Substance: DIGOXIN
  7. CAPTOPRIL [Concomitant]
     Active Substance: CAPTOPRIL
  8. TACROLIMUS [Concomitant]
     Active Substance: TACROLIMUS
  9. MYCOPHENOLATE MOFETIL [Concomitant]
     Active Substance: MYCOPHENOLATE MOFETIL
  10. GANCICLOVIR [Concomitant]
     Active Substance: GANCICLOVIR
  11. CYCLOPHOSPHAMIDE [Concomitant]
     Active Substance: CYCLOPHOSPHAMIDE

REACTIONS (1)
  - Diffuse large B-cell lymphoma [Unknown]

NARRATIVE: CASE EVENT DATE: 20190101
